FAERS Safety Report 21635725 (Version 1)
Quarter: 2022Q4

REPORT INFORMATION
  Report Type: Spontaneous
  Country: None (occurrence: US)
  Receive Date: 20221123
  Receipt Date: 20221123
  Transmission Date: 20230112
  Serious: Yes (Hospitalization, Other)
  Sender: FDA-Public Use
  Company Number: US-GREER Laboratories, Inc.-2135211

PATIENT
  Age: 48 Year
  Sex: Female
  Weight: 118.18 kg

DRUGS (34)
  1. WHITE ASH POLLEN [Suspect]
     Active Substance: FRAXINUS AMERICANA POLLEN
     Indication: Rhinitis allergic
     Route: 058
     Dates: start: 20221017, end: 20221017
  2. WHITE OAK POLLEN [Suspect]
     Active Substance: QUERCUS ALBA POLLEN
     Route: 058
     Dates: start: 20221017, end: 20221017
  3. WHITE OAK POLLEN [Suspect]
     Active Substance: QUERCUS ALBA POLLEN
     Route: 058
     Dates: start: 20221017, end: 20221017
  4. WHITE HICKORY POLLEN [Suspect]
     Active Substance: CARYA TOMENTOSA POLLEN
     Route: 058
     Dates: start: 20221017, end: 20221017
  5. BOX ELDER POLLEN [Suspect]
     Active Substance: ACER NEGUNDO POLLEN
     Route: 058
     Dates: start: 20221017, end: 20221017
  6. RIVER/RED BIRCH POLLEN [Suspect]
     Active Substance: BETULA NIGRA POLLEN
     Route: 058
     Dates: start: 20221017, end: 20221017
  7. STANDARDIZED TIMOTHY GRASS POLLEN [Suspect]
     Active Substance: PHLEUM PRATENSE POLLEN
     Route: 058
     Dates: start: 20221017, end: 20221017
  8. STANDARDIZED TIMOTHY GRASS POLLEN [Suspect]
     Active Substance: PHLEUM PRATENSE POLLEN
     Route: 058
     Dates: start: 20221017, end: 20221017
  9. STANDARDIZED MITE, DERMATOPHAGOIDES FARINAE [Suspect]
     Active Substance: DERMATOPHAGOIDES FARINAE
     Route: 058
     Dates: start: 20221017, end: 20221017
  10. STANDARDIZED MITE, DERMATOPHAGOIDES FARINAE [Suspect]
     Active Substance: DERMATOPHAGOIDES FARINAE
     Route: 058
     Dates: start: 20221017, end: 20221017
  11. STANDARDIZED MITE, DERMATOPHAGOIDES PTERONYSSINUS [Suspect]
     Active Substance: DERMATOPHAGOIDES PTERONYSSINUS
     Route: 058
     Dates: start: 20221017, end: 20221017
  12. STANDARDIZED MITE, DERMATOPHAGOIDES PTERONYSSINUS [Suspect]
     Active Substance: DERMATOPHAGOIDES PTERONYSSINUS
     Route: 058
     Dates: start: 20221017, end: 20221017
  13. JOHNSON GRASS POLLEN [Suspect]
     Active Substance: SORGHUM HALEPENSE POLLEN
     Route: 058
     Dates: start: 20221017, end: 20221017
  14. JOHNSON GRASS POLLEN [Suspect]
     Active Substance: SORGHUM HALEPENSE POLLEN
     Route: 058
     Dates: start: 20221017, end: 20221017
  15. LAMBS QUARTERS POLLEN [Suspect]
     Active Substance: CHENOPODIUM ALBUM POLLEN
     Route: 058
     Dates: start: 20221017, end: 20221017
  16. LAMBS QUARTERS POLLEN [Suspect]
     Active Substance: CHENOPODIUM ALBUM POLLEN
     Route: 058
     Dates: start: 20221017, end: 20221017
  17. ENGLISH PLANTAIN POLLEN [Suspect]
     Active Substance: PLANTAGO LANCEOLATA POLLEN
     Route: 058
     Dates: start: 20221017, end: 20221017
  18. STANDARDIZED SHORT RAGWEED POLLEN [Suspect]
     Active Substance: AMBROSIA ARTEMISIIFOLIA POLLEN
     Route: 058
     Dates: start: 20221017, end: 20221017
  19. STANDARDIZED SHORT RAGWEED POLLEN [Suspect]
     Active Substance: AMBROSIA ARTEMISIIFOLIA POLLEN
     Route: 058
     Dates: start: 20221017, end: 20221017
  20. SHEEP SORREL POLLEN [Suspect]
     Active Substance: RUMEX ACETOSELLA POLLEN
     Route: 058
     Dates: start: 20221017, end: 20221017
  21. ROUGH REDROOT PIGWEED POLLEN [Suspect]
     Active Substance: AMARANTHUS RETROFLEXUS POLLEN
     Route: 058
     Dates: start: 20221017, end: 20221017
  22. FUSARIUM SOLANI [Suspect]
     Active Substance: HAEMATONECTRIA HAEMATOCOCCA
     Route: 058
     Dates: start: 20221017, end: 20221017
  23. FUSARIUM SOLANI [Suspect]
     Active Substance: HAEMATONECTRIA HAEMATOCOCCA
     Route: 058
     Dates: start: 20221017, end: 20221017
  24. STANDARDIZED CAT HAIR [Suspect]
     Active Substance: FELIS CATUS HAIR
     Route: 058
     Dates: start: 20221017, end: 20221017
  25. STANDARDIZED CAT HAIR [Suspect]
     Active Substance: FELIS CATUS HAIR
     Route: 058
     Dates: start: 20221017, end: 20221017
  26. DOG EPITHELIA [Suspect]
     Active Substance: CANIS LUPUS FAMILIARIS SKIN
     Route: 058
     Dates: start: 20221017, end: 20221017
  27. ALLEGRA [Concomitant]
     Active Substance: FEXOFENADINE HYDROCHLORIDE
     Dates: start: 20220901
  28. AMLODIPINE [Concomitant]
     Active Substance: AMLODIPINE BESYLATE
     Dates: start: 20211201
  29. AZELASTINE HYDROCHLORIDE [Concomitant]
     Active Substance: AZELASTINE HYDROCHLORIDE
     Dates: start: 20220101
  30. BUPROPION HYDROCHLORIDE [Concomitant]
     Active Substance: BUPROPION HYDROCHLORIDE
     Dates: start: 20211201
  31. FLONASE [Concomitant]
     Active Substance: FLUTICASONE PROPIONATE
     Dates: start: 20220401
  32. Hailey (norethindrone acetate and ethinyl estradiol tablets, USP) [Concomitant]
     Dates: start: 20211201
  33. PANTOPRAZOLE SODIUM [Concomitant]
     Active Substance: PANTOPRAZOLE SODIUM
     Dates: start: 20211201
  34. ALBUTEROL [Concomitant]
     Active Substance: ALBUTEROL
     Dates: start: 20220201

REACTIONS (1)
  - Anaphylactic reaction [Recovered/Resolved]

NARRATIVE: CASE EVENT DATE: 20221017
